FAERS Safety Report 18571516 (Version 9)
Quarter: 2023Q2

REPORT INFORMATION
  Report Type: Spontaneous
  Country: US (occurrence: US)
  Receive Date: 20201202
  Receipt Date: 20230623
  Transmission Date: 20230721
  Serious: Yes (Hospitalization, Other)
  Sender: FDA-Public Use
  Company Number: US-PFIZER INC-2020473473

PATIENT
  Age: 65 Year
  Sex: Female

DRUGS (1)
  1. XELJANZ XR [Suspect]
     Active Substance: TOFACITINIB CITRATE
     Indication: Osteoarthritis
     Dosage: 11 MG, 1X/DAY
     Route: 048

REACTIONS (7)
  - COVID-19 [Unknown]
  - Mobility decreased [Recovering/Resolving]
  - Off label use [Unknown]
  - Lipid metabolism disorder [Unknown]
  - Asthenia [Recovering/Resolving]
  - Hypertension [Unknown]
  - Hyperglycaemia [Unknown]
